FAERS Safety Report 21087098 (Version 2)
Quarter: 2022Q3

REPORT INFORMATION
  Report Type: Spontaneous
  Country: JP (occurrence: JP)
  Receive Date: 20220715
  Receipt Date: 20220906
  Transmission Date: 20221027
  Serious: Yes (Other)
  Sender: FDA-Public Use
  Company Number: JP-BEH-2022147291

PATIENT
  Age: 80 Year
  Sex: Male

DRUGS (1)
  1. HIZENTRA [Suspect]
     Active Substance: HUMAN IMMUNOGLOBULIN G
     Indication: Chronic inflammatory demyelinating polyradiculoneuropathy
     Dosage: 24 GRAM, QOW
     Route: 058
     Dates: start: 20190909, end: 20191225

REACTIONS (5)
  - Chronic inflammatory demyelinating polyradiculoneuropathy [Recovered/Resolved]
  - Hypoaesthesia [Recovered/Resolved]
  - Injection site swelling [Recovered/Resolved]
  - No adverse event [Unknown]
  - Off label use [Unknown]
